FAERS Safety Report 14841647 (Version 4)
Quarter: 2018Q3

REPORT INFORMATION
  Report Type: Report from Study
  Country: US (occurrence: US)
  Receive Date: 20180503
  Receipt Date: 20180730
  Transmission Date: 20181010
  Serious: Yes (Other)
  Sender: FDA-Public Use
  Company Number: US-ALEXION PHARMACEUTICALS INC.-A201804827

PATIENT
  Age: 50 Year
  Sex: Female

DRUGS (2)
  1. STRENSIQ [Suspect]
     Active Substance: ASFOTASE ALFA
     Indication: HYPOPHOSPHATASIA
     Dosage: 41 MG, QD 6 TIMES A WEEK
     Route: 058
     Dates: start: 201705, end: 20180530
  2. STRENSIQ [Suspect]
     Active Substance: ASFOTASE ALFA
     Dosage: UNK
     Route: 065
     Dates: start: 20180503

REACTIONS (19)
  - Fatigue [Unknown]
  - Arthropathy [Unknown]
  - Cluster headache [Not Recovered/Not Resolved]
  - Paraesthesia [Unknown]
  - Hypoaesthesia [Unknown]
  - Peroneal nerve palsy [Unknown]
  - Incorrect dose administered [Unknown]
  - Hypoaesthesia oral [Unknown]
  - Arthralgia [Recovering/Resolving]
  - Pain [Not Recovered/Not Resolved]
  - Ehlers-Danlos syndrome [Not Recovered/Not Resolved]
  - Bladder dysfunction [Unknown]
  - Bone pain [Recovering/Resolving]
  - Neurological symptom [Unknown]
  - Myalgia [Unknown]
  - Alopecia [Unknown]
  - Joint noise [Recovering/Resolving]
  - Joint dislocation [Unknown]
  - Amnesia [Unknown]

NARRATIVE: CASE EVENT DATE: 20180530
